FAERS Safety Report 11649781 (Version 2)
Quarter: 2015Q4

REPORT INFORMATION
  Report Type: Spontaneous
  Country: JP (occurrence: JP)
  Receive Date: 20151021
  Receipt Date: 20151026
  Transmission Date: 20160304
  Serious: Yes (Hospitalization)
  Sender: FDA-Public Use
  Company Number: JP-PFIZER INC-2015352373

PATIENT
  Age: 50 Year
  Sex: Male

DRUGS (9)
  1. CELECOX [Suspect]
     Active Substance: CELECOXIB
     Dosage: 400 MG, DAILY
     Route: 048
     Dates: start: 201503
  2. CELECOX [Suspect]
     Active Substance: CELECOXIB
     Indication: RHEUMATOID ARTHRITIS
     Dosage: 200 MG, DAILY
     Route: 048
     Dates: start: 20120705
  3. CELECOX [Suspect]
     Active Substance: CELECOXIB
     Dosage: 400 MG, DAILY
     Route: 048
     Dates: start: 20140704
  4. CYTOTEC [Concomitant]
     Active Substance: MISOPROSTOL
     Dosage: 200 MG, DAILY
     Route: 048
     Dates: start: 20120705
  5. AZULFIDINE EN-TABS [Concomitant]
     Active Substance: SULFASALAZINE
     Dosage: 1000 MG, DAILY
     Route: 048
  6. RIMATIL [Concomitant]
     Active Substance: BUCILLAMINE
     Dosage: 200 MG, DAILY
     Route: 048
  7. CELECOX [Suspect]
     Active Substance: CELECOXIB
     Dosage: 400 MG, DAILY
     Route: 048
     Dates: start: 20121220
  8. METOLATE [Concomitant]
     Active Substance: METHOTREXATE
     Dosage: 12 MG, DAILY
     Route: 048
  9. GASTER [Concomitant]
     Active Substance: FAMOTIDINE
     Dosage: 20 MG, DAILY
     Route: 048
     Dates: start: 201503

REACTIONS (1)
  - Gastric ulcer haemorrhage [Recovering/Resolving]

NARRATIVE: CASE EVENT DATE: 20151015
